FAERS Safety Report 5622593-9 (Version None)
Quarter: 2008Q1

REPORT INFORMATION
  Report Type: 
  Country: None (occurrence: None)
  Receive Date: 20080211
  Receipt Date: 20080211
  Transmission Date: 20080703
  Serious: No
  Sender: FDA-Public Use
  Company Number: None

PATIENT
  Sex: Female
  Weight: 73.9363 kg

DRUGS (2)
  1. AMIFOSTINE [Suspect]
     Indication: DRY MOUTH
     Dosage: 500MG  M-F  SQ  (DURATION: 4 DOSES SINCE 1/29/08)
     Route: 058
     Dates: start: 20080129
  2. AMIFOSTINE [Suspect]
     Indication: NEOPLASM MALIGNANT
     Dosage: 500MG  M-F  SQ  (DURATION: 4 DOSES SINCE 1/29/08)
     Route: 058
     Dates: start: 20080129

REACTIONS (1)
  - RASH MACULO-PAPULAR [None]
